FAERS Safety Report 23719755 (Version 1)
Quarter: 2024Q2

REPORT INFORMATION
  Report Type: Spontaneous
  Country: AR (occurrence: AR)
  Receive Date: 20240408
  Receipt Date: 20240408
  Transmission Date: 20240716
  Serious: Yes (Hospitalization)
  Sender: FDA-Public Use
  Company Number: AR-PFIZER INC-PV202400031548

PATIENT
  Age: 23 Year
  Sex: Male

DRUGS (1)
  1. IXIFI [Suspect]
     Active Substance: INFLIXIMAB-QBTX
     Dosage: 4 AMPOULES OF 100 MG, EVERY 6 WEEKS
     Dates: start: 20211208

REACTIONS (4)
  - Malaise [Unknown]
  - Fatigue [Unknown]
  - Acne [Unknown]
  - Pallor [Unknown]

NARRATIVE: CASE EVENT DATE: 20240101
